FAERS Safety Report 24357873 (Version 2)
Quarter: 2024Q4

REPORT INFORMATION
  Report Type: Spontaneous
  Country: JP (occurrence: JP)
  Receive Date: 20240924
  Receipt Date: 20241212
  Transmission Date: 20250115
  Serious: Yes (Death, Hospitalization)
  Sender: ELI LILLY AND COMPANY
  Company Number: JP-ELI_LILLY_AND_COMPANY-JP202409012725

PATIENT
  Age: 95 Year
  Sex: Male
  Weight: 63 kg

DRUGS (3)
  1. TRULICITY [Suspect]
     Active Substance: DULAGLUTIDE
     Indication: Type 2 diabetes mellitus
     Dosage: UNK
     Route: 058
     Dates: start: 20210820, end: 20230810
  2. GLICLAZIDE [Concomitant]
     Active Substance: GLICLAZIDE
  3. LEVOTHYROXINE SODIUM [Concomitant]
     Active Substance: LEVOTHYROXINE SODIUM

REACTIONS (3)
  - Oesophageal varices haemorrhage [Fatal]
  - Hepatic cirrhosis [Fatal]
  - Ascites [Fatal]

NARRATIVE: CASE EVENT DATE: 20230810
